FAERS Safety Report 5042394-2 (Version None)
Quarter: 2006Q3

REPORT INFORMATION
  Report Type: 
  Country: None (occurrence: None)
  Receive Date: 20060705
  Receipt Date: 20060424
  Transmission Date: 20061208
  Serious: Yes (Hospitalization)
  Sender: FDA-Public Use
  Company Number: FR-BRISTOL-MYERS SQUIBB COMPANY-13355367

PATIENT
  Age: 93 Year
  Sex: Female

DRUGS (3)
  1. APROVEL TABS 75 MG [Suspect]
     Indication: HYPERTENSION
     Route: 048
  2. APROVEL TABS 75 MG [Suspect]
     Route: 048
     Dates: start: 20060601, end: 20060615
  3. STILNOX [Concomitant]

REACTIONS (4)
  - CHEST PAIN [None]
  - CONFUSIONAL STATE [None]
  - PARAESTHESIA [None]
  - SPEECH DISORDER [None]
